FAERS Safety Report 7046252-3 (Version None)
Quarter: 2010Q4

REPORT INFORMATION
  Report Type: 
  Country: None (occurrence: None)
  Receive Date: 20101014
  Receipt Date: 20101008
  Transmission Date: 20110411
  Serious: Yes (Other)
  Sender: FDA-Public Use
  Company Number: A0885657A

PATIENT
  Age: 40 Year
  Sex: Male

DRUGS (4)
  1. LAMICTAL [Suspect]
     Dosage: 200MG TWICE PER DAY
     Route: 048
     Dates: start: 20090201, end: 20100929
  2. TRILEPTAL [Concomitant]
  3. DILANTIN [Concomitant]
  4. KEPPRA [Concomitant]

REACTIONS (3)
  - DRUG ADMINISTRATION ERROR [None]
  - EPIGASTRIC DISCOMFORT [None]
  - GRAND MAL CONVULSION [None]
